FAERS Safety Report 15372016 (Version 1)
Quarter: 2018Q3

REPORT INFORMATION
  Report Type: Report from Study
  Country: US (occurrence: US)
  Receive Date: 20180911
  Receipt Date: 20180911
  Transmission Date: 20181010
  Serious: Yes (Death, Life-Threatening, Other)
  Sender: FDA-Public Use
  Company Number: US-TEVA-2018-US-952612

PATIENT
  Age: 15 Year
  Sex: Female

DRUGS (2)
  1. QUETIAPINE. [Suspect]
     Active Substance: QUETIAPINE
     Route: 065
  2. IBUPROFEN. [Suspect]
     Active Substance: IBUPROFEN
     Route: 065

REACTIONS (11)
  - Ventricular arrhythmia [Unknown]
  - Toxicity to various agents [Fatal]
  - Electrocardiogram QRS complex prolonged [Unknown]
  - Depressed level of consciousness [Unknown]
  - Tachycardia [Unknown]
  - Asthma [Unknown]
  - Hypotension [Unknown]
  - Metabolic acidosis [Unknown]
  - Anion gap abnormal [Unknown]
  - Bronchial hyperreactivity [Unknown]
  - Coma [Unknown]
